FAERS Safety Report 15541373 (Version 3)
Quarter: 2018Q4

REPORT INFORMATION
  Report Type: Spontaneous
  Country: US (occurrence: US)
  Receive Date: 20181023
  Receipt Date: 20181109
  Transmission Date: 20190205
  Serious: Yes (Disabling, Other)
  Sender: FDA-Public Use
  Company Number: US-PFIZER INC-2018424244

PATIENT
  Age: 25 Month
  Sex: Female

DRUGS (8)
  1. PACLITAXEL. [Suspect]
     Active Substance: PACLITAXEL
     Indication: CONGENITAL TERATOMA
     Dosage: 250 MG/M2, CYCLIC (3 CYCLES, ALTERNATIVE, DAY 1)
     Route: 042
  2. BLEOMYCIN SULFATE [Suspect]
     Active Substance: BLEOMYCIN SULFATE
     Indication: CONGENITAL TERATOMA
     Dosage: (15 U/M2, 4 CYCLES, DAY 1)
     Route: 042
  3. IFOSFAMIDE. [Suspect]
     Active Substance: IFOSFAMIDE
     Indication: CONGENITAL TERATOMA
     Dosage: 1500 MG/M2, CYCLIC (ALTERNATIVE, 3 CYCLES, DAYS 2 TO 5)
     Route: 042
  4. CISPLATIN. [Suspect]
     Active Substance: CISPLATIN
     Indication: CONGENITAL TERATOMA
     Dosage: 20 MG/M2, CYCLIC (4 CYCLES, DAYS 1 TO 5)
     Route: 042
  5. CISPLATIN. [Suspect]
     Active Substance: CISPLATIN
     Dosage: 25 MG/M2, CYCLIC (3 CYCLES, ALTERNATIVE, DAYS 2 TO 5)
     Route: 042
  6. ETOPOSIDE. [Suspect]
     Active Substance: ETOPOSIDE
     Indication: CONGENITAL TERATOMA
     Dosage: 100 MG/M2, CYCLIC (4 CYCLES, DAYS 1 TO 5)
     Route: 042
  7. ETOPOSIDE. [Suspect]
     Active Substance: ETOPOSIDE
     Dosage: 400 MG/M2, CYCLIC (3 CYCLES, HIGH DOSE, DAYS -4 TO -2, CONSOLIDATION TREATMENT)
  8. CARBOPLATIN. [Suspect]
     Active Substance: CARBOPLATIN
     Indication: CONGENITAL TERATOMA
     Dosage: 600 MG/M2, CYCLIC (3 CYCLES OF HIGH DOSE, DAYS -4 TO -2, CONSOLIDATION TREATMENT)

REACTIONS (1)
  - Deafness [Not Recovered/Not Resolved]
